FAERS Safety Report 8496801-3 (Version None)
Quarter: 2012Q3

REPORT INFORMATION
  Report Type: 
  Country: None (occurrence: None)
  Receive Date: 20120709
  Receipt Date: 20120707
  Transmission Date: 20120928
  Serious: Yes (Life-Threatening, Hospitalization)
  Sender: FDA-Public Use
  Company Number: FR-ABBOTT-12P-056-0922604-00

PATIENT
  Age: 52 Year
  Sex: Male

DRUGS (5)
  1. DIPRIVAN [Suspect]
     Indication: ANAESTHESIA
     Route: 065
     Dates: start: 20120227, end: 20120227
  2. PIPAMPERONE [Suspect]
     Indication: PRODUCT USED FOR UNKNOWN INDICATION
     Route: 048
  3. ASPIRIN [Suspect]
     Indication: CEREBROVASCULAR ACCIDENT
     Route: 048
  4. BACLOFEN [Suspect]
     Indication: CEREBROVASCULAR ACCIDENT
  5. DEPAKOTE [Suspect]
     Indication: EPILEPSY
     Route: 048
     Dates: end: 20120228

REACTIONS (3)
  - CIRCULATORY COLLAPSE [None]
  - RESPIRATORY DISTRESS [None]
  - PANCREATITIS ACUTE [None]
